FAERS Safety Report 4468114-8 (Version None)
Quarter: 2004Q4

REPORT INFORMATION
  Report Type: 
  Country: None (occurrence: None)
  Receive Date: 20041006
  Receipt Date: 20040923
  Transmission Date: 20050328
  Serious: Yes (Hospitalization)
  Sender: FDA-Public Use
  Company Number: 2004UW19878

PATIENT
  Age: 41 Year
  Sex: Male

DRUGS (4)
  1. CRESTOR [Suspect]
     Dosage: 10 MG DAILY PO
     Route: 048
     Dates: start: 20040427, end: 20040712
  2. GEMFIBROZIL [Concomitant]
  3. PROTONIX [Concomitant]
  4. DIOVAN [Concomitant]

REACTIONS (3)
  - BLOOD CREATINE PHOSPHOKINASE INCREASED [None]
  - CHOLECYSTITIS [None]
  - LIVER FUNCTION TEST ABNORMAL [None]
